FAERS Safety Report 12744749 (Version 1)
Quarter: 2016Q3

REPORT INFORMATION
  Report Type: Report from Study
  Country: US (occurrence: US)
  Receive Date: 20160915
  Receipt Date: 20160915
  Transmission Date: 20161109
  Serious: Yes (Other)
  Sender: FDA-Public Use
  Company Number: US-AMGEN-USASL2016122123

PATIENT
  Age: 32 Year
  Sex: Female

DRUGS (1)
  1. ENBREL [Suspect]
     Active Substance: ETANERCEPT
     Indication: PRODUCT USED FOR UNKNOWN INDICATION
     Dosage: UNK
     Route: 065

REACTIONS (10)
  - Joint swelling [Unknown]
  - Arthritis [Unknown]
  - White blood cell count increased [Unknown]
  - Weight decreased [Unknown]
  - Condition aggravated [Unknown]
  - Fatigue [Unknown]
  - Malaise [Unknown]
  - Nasopharyngitis [Unknown]
  - Joint injury [Unknown]
  - Skin cancer [Unknown]

NARRATIVE: CASE EVENT DATE: 2003
